FAERS Safety Report 21608377 (Version 3)
Quarter: 2023Q2

REPORT INFORMATION
  Report Type: Report from Study
  Country: CO (occurrence: CO)
  Receive Date: 20221117
  Receipt Date: 20230505
  Transmission Date: 20230722
  Serious: Yes (Other)
  Sender: FDA-Public Use
  Company Number: CO-002147023-NVSC2022CO258514

PATIENT
  Sex: Female

DRUGS (1)
  1. TASIGNA [Suspect]
     Active Substance: NILOTINIB
     Indication: Chronic myeloid leukaemia
     Dosage: 300 MG/KG, BID
     Route: 048

REACTIONS (4)
  - Breast cancer [Unknown]
  - Second primary malignancy [Unknown]
  - Platelet count decreased [Unknown]
  - Procedural pain [Not Recovered/Not Resolved]
